FAERS Safety Report 8234215-1 (Version None)
Quarter: 2012Q1

REPORT INFORMATION
  Report Type: 
  Country: None (occurrence: None)
  Receive Date: 20120326
  Receipt Date: 20120323
  Transmission Date: 20120608
  Serious: Yes (Other)
  Sender: FDA-Public Use
  Company Number: US-PFIZER INC-2012076112

PATIENT
  Sex: Female
  Weight: 113.38 kg

DRUGS (4)
  1. CHANTIX [Suspect]
     Dosage: 1MG, UNK
     Route: 048
     Dates: start: 20110801, end: 20110101
  2. CHANTIX [Suspect]
     Indication: SMOKING CESSATION THERAPY
     Dosage: 0.5 MG, DAILY
     Route: 048
     Dates: start: 20110801, end: 20110801
  3. DEPAKOTE [Concomitant]
     Indication: BIPOLAR DISORDER
     Dosage: 500 MG, 2X/DAY
  4. WELLBUTRIN [Concomitant]
     Indication: DEPRESSION
     Dosage: UNK, DAILY

REACTIONS (6)
  - APHONIA [None]
  - ASTHENIA [None]
  - BENIGN LARYNGEAL NEOPLASM [None]
  - DEPRESSION [None]
  - SUICIDAL IDEATION [None]
  - BIPOLAR DISORDER [None]
